FAERS Safety Report 5741246-X (Version None)
Quarter: 2008Q2

REPORT INFORMATION
  Report Type: 
  Country: None (occurrence: None)
  Receive Date: 20080516
  Receipt Date: 20080509
  Transmission Date: 20081010
  Serious: Yes (Other)
  Sender: FDA-Public Use
  Company Number: US-PFIZER INC-2008041245

PATIENT
  Sex: Female
  Weight: 85.454 kg

DRUGS (13)
  1. CHANTIX [Suspect]
     Indication: SMOKING CESSATION THERAPY
     Route: 048
  2. GLUCOPHAGE [Concomitant]
  3. AMARYL [Concomitant]
  4. XANAX [Concomitant]
  5. HYDROCODONE BITARTRATE [Concomitant]
  6. NEXIUM [Concomitant]
  7. CYMBALTA [Concomitant]
  8. ATENOLOL [Concomitant]
  9. TRAZODONE HCL [Concomitant]
  10. FLEXERIL [Concomitant]
  11. IMIPRAMINE HYDROCHLORIDE [Concomitant]
     Indication: BLADDER OPERATION
  12. VESICARE [Concomitant]
     Indication: BLADDER OPERATION
  13. DICYCLOMINE [Concomitant]
     Indication: ABDOMINAL PAIN UPPER

REACTIONS (1)
  - BLOOD GLUCOSE INCREASED [None]
